FAERS Safety Report 5505560-5 (Version None)
Quarter: 2007Q4

REPORT INFORMATION
  Report Type: 
  Country: None (occurrence: None)
  Receive Date: 20071102
  Receipt Date: 20071023
  Transmission Date: 20080405
  Serious: Yes (Other)
  Sender: FDA-Public Use
  Company Number: GB-PFIZER INC-2007089617

PATIENT
  Age: 45 Year
  Sex: Female

DRUGS (4)
  1. ZITHROMAX [Suspect]
     Indication: LOWER RESPIRATORY TRACT INFECTION
     Route: 048
     Dates: start: 20060616, end: 20060619
  2. ERYTHROMYCIN [Suspect]
     Indication: LOWER RESPIRATORY TRACT INFECTION
     Route: 048
     Dates: start: 20060609, end: 20060616
  3. ONE-ALPHA [Suspect]
     Indication: HYPOPARATHYROIDISM
  4. CALCIUM W/MAGNESIUM [Concomitant]
     Indication: HYPOPARATHYROIDISM
     Dosage: DAILY DOSE:1000MG
     Route: 048

REACTIONS (1)
  - HYPOCALCAEMIA [None]
